FAERS Safety Report 8423371 (Version 6)
Quarter: 2014Q3

REPORT INFORMATION
  Report Type: Spontaneous
  Country: CA (occurrence: CA)
  Receive Date: 20120223
  Receipt Date: 20140716
  Transmission Date: 20150326
  Serious: Yes (Hospitalization, Other)
  Sender: FDA-Public Use
  Company Number: CA-ROCHE-1041743

PATIENT
  Age: 47 Year
  Sex: Male

DRUGS (5)
  1. XOLAIR [Suspect]
     Active Substance: OMALIZUMAB
     Indication: ASTHMA
     Route: 058
     Dates: start: 20051215
  2. XOLAIR [Suspect]
     Active Substance: OMALIZUMAB
     Route: 058
     Dates: start: 20060112
  3. XOLAIR [Suspect]
     Active Substance: OMALIZUMAB
     Route: 058
     Dates: start: 20120126
  4. XOLAIR [Suspect]
     Active Substance: OMALIZUMAB
     Route: 058
     Dates: start: 20131227
  5. XOLAIR [Suspect]
     Active Substance: OMALIZUMAB
     Route: 058
     Dates: start: 20140109

REACTIONS (12)
  - Thirst [Unknown]
  - Pyrexia [Recovered/Resolved]
  - Nausea [Unknown]
  - Blood pressure increased [Unknown]
  - Chills [Unknown]
  - Stress [Unknown]
  - Feeling abnormal [Unknown]
  - Cough [Unknown]
  - Asthenia [Recovering/Resolving]
  - Heart rate increased [Not Recovered/Not Resolved]
  - Musculoskeletal chest pain [Unknown]
  - Dizziness [Unknown]

NARRATIVE: CASE EVENT DATE: 20120126
